FAERS Safety Report 16779694 (Version 2)
Quarter: 2019Q3

REPORT INFORMATION
  Report Type: Spontaneous
  Country: BR (occurrence: BR)
  Receive Date: 20190906
  Receipt Date: 20190911
  Transmission Date: 20191005
  Serious: Yes (Other)
  Sender: FDA-Public Use
  Company Number: BR-TORRENT-00005094

PATIENT
  Age: 21 Year
  Sex: Female
  Weight: 55 kg

DRUGS (5)
  1. VENLIFT OD [Suspect]
     Active Substance: VENLAFAXINE HYDROCHLORIDE
     Indication: DEPRESSION
     Dosage: ONE CAPSULE IN THE MORNING. APPROX. THE FIRST WEEK OF AUG/2019
     Route: 048
     Dates: start: 201908
  2. CLOPIDOGREL [Concomitant]
     Active Substance: CLOPIDOGREL BISULFATE
     Indication: ANTIPLATELET THERAPY
     Dosage: ONE TABLET AT NIGHT. OVER A YEAR AGO
     Route: 048
  3. KETOPROFEN. [Concomitant]
     Active Substance: KETOPROFEN
     Indication: HEADACHE
     Dosage: ONE TABLET DAILY. LAST WEEK
     Route: 048
     Dates: start: 201908
  4. ALPRAZOLAM. [Concomitant]
     Active Substance: ALPRAZOLAM
     Indication: ANXIETY
     Dosage: 3 TABLETS IF NECESSARY.??BEGINNING OF AUGUST/2019
     Route: 048
     Dates: start: 201908
  5. SODIUM VALPROATE [Concomitant]
     Active Substance: VALPROATE SODIUM
     Indication: MIGRAINE
     Dosage: ONE TABLET AT NIGHT
     Route: 048

REACTIONS (6)
  - Sedation [Unknown]
  - Migraine [Not Recovered/Not Resolved]
  - Haemorrhage [Unknown]
  - Night sweats [Not Recovered/Not Resolved]
  - Pyrexia [Not Recovered/Not Resolved]
  - Photosensitivity reaction [Not Recovered/Not Resolved]

NARRATIVE: CASE EVENT DATE: 201908
